FAERS Safety Report 7807164-8 (Version None)
Quarter: 2011Q4

REPORT INFORMATION
  Report Type: 
  Country: None (occurrence: None)
  Receive Date: 20111011
  Receipt Date: 20110930
  Transmission Date: 20120403
  Serious: Yes (Congenital Anomaly, Other)
  Sender: FDA-Public Use
  Company Number: PHHY2011JP77953

PATIENT
  Sex: Female
  Weight: 3 kg

DRUGS (2)
  1. FEMARA [Suspect]
     Route: 064
  2. FOLLISTIM [Concomitant]

REACTIONS (8)
  - LIMB MALFORMATION [None]
  - SYNDACTYLY [None]
  - CONGENITAL KNEE DISLOCATION [None]
  - MATERNAL EXPOSURE DURING PREGNANCY [None]
  - HIP DYSPLASIA [None]
  - TALIPES [None]
  - FIBULA AGENESIS [None]
  - JAUNDICE [None]
